FAERS Safety Report 17559031 (Version 2)
Quarter: 2020Q2

REPORT INFORMATION
  Report Type: Spontaneous
  Country: US (occurrence: US)
  Receive Date: 20200319
  Receipt Date: 20200408
  Transmission Date: 20200713
  Serious: Yes (Other)
  Sender: FDA-Public Use
  Company Number: US-SA-2020SA066748

PATIENT
  Age: 61 Year
  Sex: Female

DRUGS (8)
  1. AUBAGIO [Suspect]
     Active Substance: TERIFLUNOMIDE
     Indication: MULTIPLE SCLEROSIS
     Dosage: 7 MG, QD
     Route: 048
     Dates: start: 20180821
  2. EFFEXOR [Concomitant]
     Active Substance: VENLAFAXINE HYDROCHLORIDE
  3. AUBAGIO [Suspect]
     Active Substance: TERIFLUNOMIDE
     Dosage: 14 MG, QD
     Route: 048
     Dates: start: 20190820
  4. EXCEDRIN [Concomitant]
     Active Substance: ACETAMINOPHEN\ASPIRIN\CAFFEINE
  5. VITAMIN D NOS [Concomitant]
     Active Substance: VITAMIN D NOS
  6. TYLENOL [Concomitant]
     Active Substance: ACETAMINOPHEN
  7. AUBAGIO [Suspect]
     Active Substance: TERIFLUNOMIDE
     Dosage: 7 MG, QD
     Route: 048
  8. WELLBUTRIN [Concomitant]
     Active Substance: BUPROPION HYDROCHLORIDE

REACTIONS (7)
  - Headache [Unknown]
  - Blood magnesium increased [Unknown]
  - Nausea [Unknown]
  - Loss of consciousness [Unknown]
  - Back pain [Unknown]
  - Cough [Unknown]
  - Immunosuppression [Unknown]
